FAERS Safety Report 25637750 (Version 1)
Quarter: 2025Q3

REPORT INFORMATION
  Report Type: Spontaneous
  Country: US (occurrence: US)
  Receive Date: 20250804
  Receipt Date: 20250804
  Transmission Date: 20251021
  Serious: Yes (Other)
  Sender: COOPERSURGICAL
  Company Number: US-COOPERSURGICAL, INC.-2025CPS005788

PATIENT
  Sex: Female
  Weight: 79.365 kg

DRUGS (6)
  1. PARAGARD T 380A [Suspect]
     Active Substance: COPPER
     Indication: Contraception
     Route: 015
     Dates: start: 20170427
  2. ARIPIPRAZOLE [Concomitant]
     Active Substance: ARIPIPRAZOLE
     Dates: start: 2017
  3. ATIVAN [Concomitant]
     Active Substance: LORAZEPAM
     Dates: start: 2017
  4. LAMOTRIGINE [Concomitant]
     Active Substance: LAMOTRIGINE
     Route: 048
     Dates: start: 2017
  5. LITHIUM CARBONATE [Concomitant]
     Active Substance: LITHIUM CARBONATE
     Dates: start: 2017
  6. BUPROPION [Concomitant]
     Active Substance: BUPROPION
     Dates: start: 2017

REACTIONS (26)
  - Reproductive complication associated with device [Unknown]
  - Surgery [Recovered/Resolved]
  - Uterine polyp [Unknown]
  - Urinary retention [Recovering/Resolving]
  - Atonic urinary bladder [Recovering/Resolving]
  - Device breakage [Recovered/Resolved]
  - Complication of device removal [Recovered/Resolved]
  - Foreign body in reproductive tract [Recovered/Resolved]
  - Embedded device [Recovered/Resolved]
  - Bipolar disorder [Not Recovered/Not Resolved]
  - Post-traumatic stress disorder [Not Recovered/Not Resolved]
  - Endometriosis [Unknown]
  - Perineal pain [Unknown]
  - Vaginal odour [Unknown]
  - Procedural haemorrhage [Recovered/Resolved]
  - Urinary incontinence [Recovering/Resolving]
  - Pollakiuria [Recovering/Resolving]
  - Micturition urgency [Recovering/Resolving]
  - Nocturia [Recovering/Resolving]
  - Stress urinary incontinence [Recovering/Resolving]
  - Procedural pain [Recovered/Resolved]
  - Device issue [Recovered/Resolved]
  - Urethral pain [Recovering/Resolving]
  - Pelvic pain [Unknown]
  - Device dislocation [Recovered/Resolved]
  - Unevaluable event [Unknown]

NARRATIVE: CASE EVENT DATE: 20220101
